FAERS Safety Report 5504994-2 (Version None)
Quarter: 2007Q4

REPORT INFORMATION
  Report Type: 
  Country: None (occurrence: None)
  Receive Date: 20071031
  Receipt Date: 20071031
  Transmission Date: 20080405
  Serious: Yes (Hospitalization)
  Sender: FDA-Public Use
  Company Number: None

PATIENT
  Age: 76 Year
  Sex: Male

DRUGS (6)
  1. LISINOPRIL [Suspect]
     Indication: HYPERTENSION
     Dosage: UNKNOWN DOSE
     Dates: start: 20060924, end: 20060924
  2. DOXAZOSIN MESYLATE [Concomitant]
  3. DOCUSATE [Concomitant]
  4. TYLENOL [Concomitant]
  5. HYDROCHLOROTHIAZIDE [Concomitant]
  6. AVELOX [Concomitant]

REACTIONS (2)
  - FACE OEDEMA [None]
  - SWOLLEN TONGUE [None]
